FAERS Safety Report 9458741 (Version 1)
Quarter: 2013Q3

REPORT INFORMATION
  Report Type: Spontaneous
  Country: US (occurrence: US)
  Receive Date: 20130814
  Receipt Date: 20130814
  Transmission Date: 20140515
  Serious: Yes (Other)
  Sender: FDA-Public Use
  Company Number: US-ROXANE LABORATORIES, INC.-2013-RO-01346RO

PATIENT
  Sex: Male

DRUGS (2)
  1. HYDROMORPHONE [Suspect]
  2. LYRICA [Suspect]

REACTIONS (2)
  - Poor peripheral circulation [Unknown]
  - Tremor [Unknown]
